FAERS Safety Report 4356206-3 (Version None)
Quarter: 2004Q2

REPORT INFORMATION
  Report Type: 
  Country: None (occurrence: None)
  Receive Date: 20040511
  Receipt Date: 20040428
  Transmission Date: 20050107
  Serious: Yes (Other)
  Sender: FDA-Public Use
  Company Number: 200412104BCC

PATIENT
  Age: 47 Year
  Sex: Female
  Weight: 63.5036 kg

DRUGS (2)
  1. ALEVE [Suspect]
     Indication: MUSCLE CRAMP
     Dosage: PRN, ORAL
     Route: 048
     Dates: start: 20040301
  2. SYNTHROID [Concomitant]

REACTIONS (1)
  - BLOOD PRESSURE DIASTOLIC INCREASED [None]
